FAERS Safety Report 7447084-4 (Version None)
Quarter: 2011Q2

REPORT INFORMATION
  Report Type: 
  Country: None (occurrence: None)
  Receive Date: 20110421
  Receipt Date: 20110408
  Transmission Date: 20111010
  Serious: Yes (Hospitalization)
  Sender: FDA-Public Use
  Company Number: DSA_44795_2011

PATIENT
  Age: 36 Year
  Sex: Female

DRUGS (3)
  1. CORTICOSTEROIDS [Concomitant]
  2. LYSODREN [Concomitant]
  3. ENALAPRIL MALEATE AND HYDROCHLOROTHIAZIDE [Suspect]
     Indication: HYPERTENSION
     Dosage: (32.5 MG QD ORAL)
     Route: 048
     Dates: start: 20091029, end: 20091029

REACTIONS (4)
  - LEFT VENTRICULAR DYSFUNCTION [None]
  - HYPOTENSION [None]
  - ADRENOCORTICAL INSUFFICIENCY ACUTE [None]
  - SEPTIC SHOCK [None]
